FAERS Safety Report 22745017 (Version 6)
Quarter: 2023Q4

REPORT INFORMATION
  Report Type: Report from Study
  Country: US (occurrence: US)
  Receive Date: 20230725
  Receipt Date: 20231219
  Transmission Date: 20240109
  Serious: Yes (Other)
  Sender: FDA-Public Use
  Company Number: US-BoehringerIngelheim-2023-BI-249805

PATIENT
  Age: 71 Year
  Sex: Female

DRUGS (3)
  1. OFEV [Suspect]
     Active Substance: NINTEDANIB
     Indication: Idiopathic pulmonary fibrosis
     Dates: start: 202308, end: 202310
  2. OFEV [Suspect]
     Active Substance: NINTEDANIB
     Indication: Interstitial lung disease
     Route: 048
     Dates: start: 20230707
  3. OFEV [Suspect]
     Active Substance: NINTEDANIB
     Route: 048
     Dates: start: 20230718, end: 20230910

REACTIONS (28)
  - Urticaria [Not Recovered/Not Resolved]
  - Gingival operation [Unknown]
  - Illness [Recovered/Resolved]
  - Constipation [Recovered/Resolved]
  - Nausea [Recovered/Resolved]
  - Food poisoning [Unknown]
  - Hiccups [Not Recovered/Not Resolved]
  - Weight decreased [Recovered/Resolved]
  - Constipation [Recovered/Resolved]
  - Pruritus [Recovered/Resolved]
  - Lip dry [Recovered/Resolved]
  - Weight decreased [Not Recovered/Not Resolved]
  - Vocal cord disorder [Unknown]
  - Diarrhoea [Unknown]
  - Headache [Recovered/Resolved]
  - Nausea [Not Recovered/Not Resolved]
  - Retching [Recovered/Resolved]
  - Decreased appetite [Not Recovered/Not Resolved]
  - Illness [Recovered/Resolved]
  - Dry throat [Not Recovered/Not Resolved]
  - Hypophagia [Not Recovered/Not Resolved]
  - Dysphonia [Recovering/Resolving]
  - Rash [Recovered/Resolved]
  - Urinary tract infection [Not Recovered/Not Resolved]
  - Varicose vein [Not Recovered/Not Resolved]
  - Constipation [Recovered/Resolved]
  - Abdominal pain upper [Not Recovered/Not Resolved]
  - Constipation [Not Recovered/Not Resolved]

NARRATIVE: CASE EVENT DATE: 20230801
